FAERS Safety Report 10423181 (Version 2)
Quarter: 2014Q3

REPORT INFORMATION
  Report Type: Spontaneous
  Country: NO (occurrence: NO)
  Receive Date: 20140902
  Receipt Date: 20140908
  Transmission Date: 20150326
  Serious: Yes (Other)
  Sender: FDA-Public Use
  Company Number: PHHY2014NO106743

PATIENT
  Age: 65 Year
  Sex: Female

DRUGS (7)
  1. CORTEF                                  /CAN/ [Concomitant]
     Indication: ADDISON^S DISEASE
     Dosage: 35 MG (5 MG, 3+2+2)
  2. VALSARTAN AND HYDROCHLOROTHIAZIDE [Concomitant]
     Active Substance: HYDROCHLOROTHIAZIDE\VALSARTAN
     Indication: HYPERTENSION
     Dosage: 1 DF, QD (160/25, 1 X 1)
  3. FEXOFENADINE [Concomitant]
     Active Substance: FEXOFENADINE\FEXOFENADINE HYDROCHLORIDE
     Dosage: 120 MG, QD
  4. SANDOSTATIN LAR DEPOT [Suspect]
     Active Substance: OCTREOTIDE ACETATE
     Indication: HYPOPITUITARISM
     Dosage: 30 MG, UNK
     Route: 051
  5. DOSTINEX [Suspect]
     Active Substance: CABERGOLINE
     Indication: HYPOPITUITARISM
     Dosage: 0.5 MG, QW
  6. LEVAXIN [Concomitant]
     Active Substance: LEVOTHYROXINE SODIUM
     Indication: HYPOTHYROIDISM
     Dosage: 125 UG, QD
  7. CARDIZEM UNOTARD [Concomitant]
     Indication: HYPERTENSION
     Dosage: 240 MG, QD
     Dates: start: 2001

REACTIONS (2)
  - Cor pulmonale [Unknown]
  - Pulmonary embolism [Unknown]

NARRATIVE: CASE EVENT DATE: 201312
